FAERS Safety Report 7715439-6 (Version None)
Quarter: 2011Q3

REPORT INFORMATION
  Report Type: 
  Country: None (occurrence: None)
  Receive Date: 20110829
  Receipt Date: 20110818
  Transmission Date: 20111222
  Serious: Yes (Other)
  Sender: FDA-Public Use
  Company Number: FR-JNJFOC-20110803517

PATIENT
  Age: 29 Year
  Sex: Female
  Weight: 65 kg

DRUGS (9)
  1. REMICADE [Suspect]
     Route: 042
     Dates: start: 20100801
  2. HUMIRA [Concomitant]
  3. REMICADE [Suspect]
     Route: 042
     Dates: start: 20110118
  4. FLUTICASONE PROPIONATE [Concomitant]
  5. REMICADE [Suspect]
     Indication: CROHN'S DISEASE
     Route: 042
     Dates: start: 20110108
  6. REMICADE [Suspect]
     Route: 042
     Dates: start: 20101101
  7. REMICADE [Suspect]
     Route: 042
     Dates: start: 20110301
  8. NEXIUM [Concomitant]
     Indication: GASTROOESOPHAGEAL REFLUX DISEASE
  9. REMICADE [Suspect]
     Dosage: 3-4 TOTAL INFUSIONS
     Route: 042
     Dates: start: 20100801

REACTIONS (1)
  - DEAFNESS TRANSITORY [None]
